FAERS Safety Report 6959902-4 (Version None)
Quarter: 2010Q3

REPORT INFORMATION
  Report Type: 
  Country: None (occurrence: None)
  Receive Date: 20100901
  Receipt Date: 20100821
  Transmission Date: 20110219
  Serious: No
  Sender: FDA-Public Use
  Company Number: US-BIOGENIDEC-2010BI029094

PATIENT
  Age: 26 Year
  Sex: Female

DRUGS (1)
  1. AVONEX [Suspect]
     Indication: MULTIPLE SCLEROSIS
     Route: 030
     Dates: start: 20080714

REACTIONS (3)
  - FLUSHING [None]
  - INJECTION SITE HAEMORRHAGE [None]
  - INJECTION SITE PAIN [None]
